FAERS Safety Report 17306733 (Version 1)
Quarter: 2020Q1

REPORT INFORMATION
  Report Type: Spontaneous
  Country: US (occurrence: US)
  Receive Date: 20200106
  Receipt Date: 20200106
  Transmission Date: 20200409
  Serious: No
  Sender: FDA-Public Use
  Company Number: None

PATIENT
  Age: 49 Year
  Sex: Male
  Weight: 93.89 kg

DRUGS (1)
  1. TAMSULOSIN (TAMSULOSIN HCL 0.4MG CAP) [Suspect]
     Active Substance: TAMSULOSIN
     Indication: BENIGN PROSTATIC HYPERPLASIA
     Route: 048
     Dates: start: 20190503, end: 20190529

REACTIONS (3)
  - Penile haemorrhage [None]
  - Scrotal disorder [None]
  - Genital lesion [None]

NARRATIVE: CASE EVENT DATE: 20190529
